FAERS Safety Report 5756383-3 (Version None)
Quarter: 2008Q2

REPORT INFORMATION
  Report Type: 
  Country: None (occurrence: None)
  Receive Date: 20080529
  Receipt Date: 20080516
  Transmission Date: 20081010
  Serious: Yes (Hospitalization, Other)
  Sender: FDA-Public Use
  Company Number: 2008S1007437

PATIENT
  Age: 19 Year
  Sex: Male

DRUGS (2)
  1. ISOTRETINOIN [Suspect]
     Indication: ACNE
     Dosage: 40 MG; TWICE A  DAY; ORAL
     Route: 048
     Dates: end: 20080421
  2. SOTRET [Suspect]
     Indication: ACNE
     Dosage: 40 MG; ORAL
     Route: 048
     Dates: start: 20080110

REACTIONS (4)
  - ADJUSTMENT DISORDER [None]
  - ANXIETY [None]
  - DEPRESSION [None]
  - SUICIDAL IDEATION [None]
